FAERS Safety Report 25002901 (Version 3)
Quarter: 2025Q1

REPORT INFORMATION
  Report Type: Spontaneous
  Country: BR (occurrence: BR)
  Receive Date: 20250224
  Receipt Date: 20250310
  Transmission Date: 20250409
  Serious: No
  Sender: SANDOZ
  Company Number: BR-SANDOZ-SDZ2025BR011047

PATIENT

DRUGS (1)
  1. FILGRASTIM [Suspect]
     Active Substance: FILGRASTIM
     Indication: Prophylactic chemotherapy
     Route: 065
     Dates: start: 20241030

REACTIONS (1)
  - Drug ineffective [Unknown]
